FAERS Safety Report 4360089-5 (Version None)
Quarter: 2004Q2

REPORT INFORMATION
  Report Type: 
  Country: None (occurrence: None)
  Receive Date: 20040519
  Receipt Date: 20040503
  Transmission Date: 20050107
  Serious: Yes (Life-Threatening, Other)
  Sender: FDA-Public Use
  Company Number: EMADSS2000002089

PATIENT
  Sex: Male

DRUGS (1)
  1. DAKTARIN [Suspect]
     Route: 049
     Dates: start: 20001108, end: 20001112

REACTIONS (4)
  - APNOEA [None]
  - ASPHYXIA [None]
  - CHOKING [None]
  - OBSTRUCTIVE AIRWAYS DISORDER [None]
